FAERS Safety Report 12305343 (Version 8)
Quarter: 2017Q3

REPORT INFORMATION
  Report Type: Report from Study
  Country: JP (occurrence: JP)
  Receive Date: 20160426
  Receipt Date: 20170925
  Transmission Date: 20171127
  Serious: Yes (Death, Life-Threatening, Hospitalization, Other)
  Sender: FDA-Public Use
  Company Number: JP-GLAXOSMITHKLINE-JP2016JPN055141

PATIENT
  Age: 61 Year
  Sex: Male
  Weight: 76 kg

DRUGS (27)
  1. SOL-MELCORT [Suspect]
     Active Substance: METHYLPREDNISOLONE SODIUM SUCCINATE
     Indication: PULMONARY VENO-OCCLUSIVE DISEASE
     Dosage: UNK
     Dates: start: 20160329, end: 20160331
  2. GLUCOSE [Suspect]
     Active Substance: DEXTROSE
     Indication: PULMONARY HYPERTENSION
  3. REVATIO [Concomitant]
     Active Substance: SILDENAFIL CITRATE
     Indication: PULMONARY VENO-OCCLUSIVE DISEASE
     Dosage: 30-60 MG, 1D
     Dates: start: 20150512, end: 20160528
  4. AMBRISENTAN [Suspect]
     Active Substance: AMBRISENTAN
     Indication: PULMONARY HYPERTENSION
     Dosage: 10 MG, QD
     Route: 048
     Dates: start: 20150318, end: 20160528
  5. TREPROST [Concomitant]
     Active Substance: TREPROSTINIL
     Indication: PULMONARY HYPERTENSION
  6. PARIET [Concomitant]
     Active Substance: RABEPRAZOLE SODIUM
     Indication: GASTRITIS PROPHYLAXIS
     Dosage: UNK
     Dates: end: 20160528
  7. FLOLAN [Suspect]
     Active Substance: EPOPROSTENOL SODIUM
     Indication: PULMONARY HYPERTENSION
  8. PREDNISOLONE. [Suspect]
     Active Substance: PREDNISOLONE
     Indication: PULMONARY VENO-OCCLUSIVE DISEASE
     Dosage: UNK
     Route: 048
     Dates: start: 20160331, end: 20160528
  9. SOL-MELCORT [Suspect]
     Active Substance: METHYLPREDNISOLONE SODIUM SUCCINATE
     Indication: PULMONARY HYPERTENSION
  10. REVATIO [Concomitant]
     Active Substance: SILDENAFIL CITRATE
     Indication: PULMONARY HYPERTENSION
  11. SAMSCA [Concomitant]
     Active Substance: TOLVAPTAN
     Dosage: UNK
     Dates: start: 20150812, end: 20160528
  12. MAGNESIUM OXIDE. [Concomitant]
     Active Substance: MAGNESIUM OXIDE
     Indication: CONSTIPATION PROPHYLAXIS
     Dosage: UNK
     Dates: end: 20160528
  13. BERASUS LA [Concomitant]
     Indication: PULMONARY VENO-OCCLUSIVE DISEASE
     Dosage: UNK
     Dates: start: 20150812, end: 20160528
  14. BERASUS LA [Concomitant]
     Indication: PULMONARY HYPERTENSION
  15. FUROSEMIDE. [Concomitant]
     Active Substance: FUROSEMIDE
     Dosage: UNK
     Dates: start: 20150227, end: 20160528
  16. FEBURIC [Concomitant]
     Active Substance: FEBUXOSTAT
     Dosage: UNK
     Dates: start: 20160109, end: 20160528
  17. MIYA-BM [Concomitant]
     Active Substance: CLOSTRIDIUM BUTYRICUM SPORES STRAIN M-55
     Indication: CONSTIPATION PROPHYLAXIS
     Dosage: UNK
     Dates: start: 20160430, end: 20160528
  18. BONALON [Concomitant]
     Active Substance: ALENDRONATE SODIUM
     Indication: OSTEOPOROSIS PROPHYLAXIS
     Dosage: UNK
     Dates: start: 20160401, end: 20160528
  19. LENDORMIN [Concomitant]
     Active Substance: BROTIZOLAM
     Indication: PROPHYLAXIS
     Dosage: UNK
     Dates: start: 20160427, end: 20160528
  20. FLOLAN [Suspect]
     Active Substance: EPOPROSTENOL SODIUM
     Indication: PULMONARY VENO-OCCLUSIVE DISEASE
     Dosage: UNK
     Route: 041
     Dates: start: 20151225, end: 20160329
  21. AMBRISENTAN [Suspect]
     Active Substance: AMBRISENTAN
     Indication: PULMONARY VENO-OCCLUSIVE DISEASE
     Dosage: 5 MG, QD
     Route: 048
     Dates: start: 20150304, end: 20150317
  22. PREDNISOLONE. [Suspect]
     Active Substance: PREDNISOLONE
     Indication: PULMONARY HYPERTENSION
  23. ADCIRCA [Concomitant]
     Active Substance: TADALAFIL
     Indication: PULMONARY HYPERTENSION
     Dosage: 20-40 MG, 1D
     Dates: start: 20160304, end: 20160528
  24. TREPROST [Concomitant]
     Active Substance: TREPROSTINIL
     Indication: PULMONARY VENO-OCCLUSIVE DISEASE
     Dosage: UNK
     Dates: end: 20160528
  25. GLUCOSE [Suspect]
     Active Substance: DEXTROSE
     Indication: PULMONARY VENO-OCCLUSIVE DISEASE
     Dosage: UNK
     Dates: start: 20160329, end: 20160331
  26. ADCIRCA [Concomitant]
     Active Substance: TADALAFIL
     Indication: PULMONARY VENO-OCCLUSIVE DISEASE
     Dosage: 10-20 MG, 1D
     Dates: start: 20150226, end: 20160303
  27. BAKTAR [Concomitant]
     Active Substance: SULFAMETHOXAZOLE\TRIMETHOPRIM
     Indication: INFECTION PROPHYLAXIS
     Dosage: UNK
     Dates: start: 20160331, end: 20160528

REACTIONS (10)
  - Haemoptysis [Recovering/Resolving]
  - Renal impairment [Recovering/Resolving]
  - Cardiac failure [Not Recovered/Not Resolved]
  - Cardiac failure [Recovering/Resolving]
  - Occult blood positive [Recovering/Resolving]
  - Platelet count decreased [Not Recovered/Not Resolved]
  - Diarrhoea [Not Recovered/Not Resolved]
  - Condition aggravated [Fatal]
  - Urinary tract infection [Not Recovered/Not Resolved]
  - Hypoxia [Fatal]

NARRATIVE: CASE EVENT DATE: 20151215
